FAERS Safety Report 18565924 (Version 2)
Quarter: 2020Q4

REPORT INFORMATION
  Report Type: Other
  Country: DE (occurrence: DE)
  Receive Date: 20201201
  Receipt Date: 20201221
  Transmission Date: 20210114
  Serious: Yes (Death, Hospitalization, Other)
  Sender: FDA-Public Use
  Company Number: DE-ROCHE-2590445

PATIENT
  Age: 67 Year
  Sex: Male
  Weight: 115 kg

DRUGS (9)
  1. ATEZOLIZUMAB. [Suspect]
     Active Substance: ATEZOLIZUMAB
     Indication: SMALL CELL LUNG CANCER
     Dosage: ON 30/SEP/2020 AND 21/OCT/2020, HE RECEIVED LAST DOSE OF ATEZOLIZUMAB.
     Route: 042
     Dates: start: 20200212
  2. DEXAMETHASON [Concomitant]
     Active Substance: DEXAMETHASONE
     Route: 048
  3. OMEPRAZOLE. [Concomitant]
     Active Substance: OMEPRAZOLE
     Route: 048
     Dates: end: 20201008
  4. PACKED RED BLOOD CELLS [Concomitant]
     Active Substance: HUMAN RED BLOOD CELL
  5. HYDROCORTISONE. [Concomitant]
     Active Substance: HYDROCORTISONE
     Dates: end: 20201008
  6. ETOPOSIDE. [Suspect]
     Active Substance: ETOPOSIDE
     Indication: SMALL CELL LUNG CANCER
     Dosage: 3 DAYS IN A ROW EVERY 3 WEEKS?ON 16/APR/2020, HE RECEIVED LAST DOSE OF ETOPOSIDE.
     Route: 042
     Dates: start: 20200212
  7. CARBOPLATIN. [Suspect]
     Active Substance: CARBOPLATIN
     Indication: SMALL CELL LUNG CANCER
     Dosage: ON 16/APR/2020, HE RECEIVED LAST DOSE OF CARBOPLATIN.
     Route: 042
     Dates: start: 20200212
  8. ACCOFIL [Concomitant]
     Active Substance: FILGRASTIM
     Dosage: DOSE WAS 30 MIO/IE, FREQUENCY WAS 3 DAYS IN THE CYCLE
     Route: 058
     Dates: start: 20200220
  9. ACCOFIL [Concomitant]
     Active Substance: FILGRASTIM
     Dosage: DOSE WAS 30 MIO/IE, FREQUENCY WAS 3 DAYS IN THE CYCLE
     Route: 058
     Dates: start: 20200221, end: 20200425

REACTIONS (11)
  - Steatohepatitis [Not Recovered/Not Resolved]
  - Liver function test increased [Not Recovered/Not Resolved]
  - Fatigue [Recovered/Resolved]
  - Hepatic function abnormal [Not Recovered/Not Resolved]
  - Constipation [Recovered/Resolved]
  - Dizziness [Recovered/Resolved]
  - Anaemia [Recovered/Resolved]
  - Leukopenia [Recovered/Resolved]
  - Vomiting [Recovered/Resolved]
  - Cachexia [Not Recovered/Not Resolved]
  - Decreased appetite [Not Recovered/Not Resolved]

NARRATIVE: CASE EVENT DATE: 20200221
